FAERS Safety Report 10364377 (Version 3)
Quarter: 2014Q3

REPORT INFORMATION
  Report Type: Spontaneous
  Country: CA (occurrence: CA)
  Receive Date: 20140806
  Receipt Date: 20140811
  Transmission Date: 20150326
  Serious: Yes (Hospitalization, Other)
  Sender: FDA-Public Use
  Company Number: CA-AMGEN-CANSP2014054910

PATIENT
  Age: 62 Year
  Sex: Female

DRUGS (5)
  1. NPLATE [Suspect]
     Active Substance: ROMIPLOSTIM
     Indication: IMMUNE THROMBOCYTOPENIC PURPURA
     Dosage: UNK
     Route: 065
     Dates: start: 20130729, end: 201405
  2. ASA [Concomitant]
     Active Substance: ASPIRIN
     Indication: CEREBROVASCULAR ACCIDENT
     Dosage: UNK
  3. DAPSONE. [Concomitant]
     Active Substance: DAPSONE
     Dosage: 50 MG, QD
     Route: 048
     Dates: start: 20140718
  4. AZATHIOPRINE. [Concomitant]
     Active Substance: AZATHIOPRINE
     Dosage: 200 MG, QD
     Route: 048
     Dates: start: 201407
  5. PREDNISONE. [Concomitant]
     Active Substance: PREDNISONE

REACTIONS (22)
  - Petechiae [Unknown]
  - Nausea [Unknown]
  - Toxicity to various agents [Unknown]
  - Collateral circulation [Unknown]
  - Oedema peripheral [Unknown]
  - Vomiting [Unknown]
  - Splenomegaly [Unknown]
  - Gastrointestinal haemorrhage [Unknown]
  - Hepatosplenomegaly [Unknown]
  - Rash [Unknown]
  - Contusion [Unknown]
  - Obesity [Unknown]
  - Body mass index increased [Unknown]
  - Increased tendency to bruise [Unknown]
  - Renal cyst [Unknown]
  - Atelectasis [Unknown]
  - Headache [Not Recovered/Not Resolved]
  - Oedema [Unknown]
  - Iron deficiency [Unknown]
  - Fibromyalgia [Unknown]
  - Platelet count decreased [Unknown]
  - Cholelithiasis [Unknown]

NARRATIVE: CASE EVENT DATE: 201401
